FAERS Safety Report 22035541 (Version 1)
Quarter: 2023Q1

REPORT INFORMATION
  Report Type: Spontaneous
  Country: US (occurrence: None)
  Receive Date: 20230223
  Receipt Date: 20230223
  Transmission Date: 20230417
  Serious: Yes (Disabling, Other)
  Sender: FDA-Public Use
  Company Number: None

PATIENT
  Age: 61 Year
  Sex: Male
  Weight: 121.5 kg

DRUGS (1)
  1. OZEMPIC [Suspect]
     Active Substance: SEMAGLUTIDE
     Indication: Diabetes mellitus
     Dates: start: 20230120, end: 20230127

REACTIONS (16)
  - Dehydration [None]
  - Dry mouth [None]
  - Dry throat [None]
  - Weight increased [None]
  - Abdominal distension [None]
  - Constipation [None]
  - Abdominal discomfort [None]
  - Gastrointestinal pain [None]
  - Back pain [None]
  - Myalgia [None]
  - Nausea [None]
  - Confusional state [None]
  - Insomnia [None]
  - Therapy cessation [None]
  - Blood glucose fluctuation [None]
  - Feeling abnormal [None]

NARRATIVE: CASE EVENT DATE: 20230120
